FAERS Safety Report 9884114 (Version 1)
Quarter: 2014Q1

REPORT INFORMATION
  Report Type: Spontaneous
  Country: US (occurrence: None)
  Receive Date: 20140207
  Receipt Date: 20140207
  Transmission Date: 20141002
  Serious: Yes (Disabling)
  Sender: FDA-Public Use
  Company Number: None

PATIENT
  Age: 68 Year
  Sex: Female
  Weight: 68.04 kg

DRUGS (2)
  1. EFUDEX [Suspect]
     Indication: SKIN CANCER
     Dosage: EFUDEX TWICE DAILY APPLIED TO A SURFACE, USUALLY THE SKIN
     Route: 061
     Dates: start: 20140123, end: 20140205
  2. EFUDEX [Suspect]
     Indication: TUMOUR HAEMORRHAGE
     Dosage: EFUDEX TWICE DAILY APPLIED TO A SURFACE, USUALLY THE SKIN
     Route: 061
     Dates: start: 20140123, end: 20140205

REACTIONS (10)
  - Malaise [None]
  - Insomnia [None]
  - Feeling abnormal [None]
  - Eye swelling [None]
  - Swelling face [None]
  - Pain [None]
  - Burning sensation [None]
  - Secretion discharge [None]
  - Scab [None]
  - Erythema [None]
